FAERS Safety Report 5404959-5 (Version None)
Quarter: 2007Q3

REPORT INFORMATION
  Report Type: 
  Country: None (occurrence: None)
  Receive Date: 20070801
  Receipt Date: 20070716
  Transmission Date: 20080115
  Serious: Yes (Death, Hospitalization)
  Sender: FDA-Public Use
  Company Number: 8018891

PATIENT
  Age: 73 Year
  Sex: Female

DRUGS (6)
  1. KEPPRA [Suspect]
     Indication: CONVULSION
     Dosage: 1500 MG 2/D PO
     Route: 048
     Dates: start: 20060701, end: 20061114
  2. LOPRESSOR [Concomitant]
  3. MAGNESIUM OXIDE [Concomitant]
  4. POTASSIUM CHLORIDE [Concomitant]
  5. THIAMIN [Concomitant]
  6. MULTI-VITAMIN [Concomitant]

REACTIONS (10)
  - ALCOHOL WITHDRAWAL SYNDROME [None]
  - BLOOD MAGNESIUM DECREASED [None]
  - COMA [None]
  - CORONARY ARTERY DISEASE [None]
  - DEMENTIA [None]
  - DRUG WITHDRAWAL CONVULSIONS [None]
  - ENCEPHALOPATHY [None]
  - HALLUCINATION [None]
  - HYPERGLYCAEMIA [None]
  - NO THERAPEUTIC RESPONSE [None]
